FAERS Safety Report 13249280 (Version 1)
Quarter: 2017Q1

REPORT INFORMATION
  Report Type: Spontaneous
  Country: US (occurrence: US)
  Receive Date: 20170218
  Receipt Date: 20170218
  Transmission Date: 20170428
  Serious: No
  Sender: FDA-Public Use
  Company Number: US-ALLERGAN-1682095US

PATIENT
  Sex: Female

DRUGS (17)
  1. REFRESH TEARS [Concomitant]
     Active Substance: CARBOXYMETHYLCELLULOSE SODIUM
     Indication: DRY EYE
     Dosage: UNK
     Route: 047
     Dates: start: 201609
  2. OMEPRAZOLE. [Concomitant]
     Active Substance: OMEPRAZOLE
     Dosage: UNK
     Route: 048
  3. ALBUTEROL. [Concomitant]
     Active Substance: ALBUTEROL
     Indication: ASTHMA
     Dosage: UNK
  4. GABAPENTIN. [Concomitant]
     Active Substance: GABAPENTIN
     Indication: ASTHMA
     Dosage: UNK
     Route: 047
  5. GABAPENTIN. [Concomitant]
     Active Substance: GABAPENTIN
     Indication: CHRONIC OBSTRUCTIVE PULMONARY DISEASE
  6. PAROXETINE. [Concomitant]
     Active Substance: PAROXETINE
     Dosage: UNK
     Route: 048
  7. VITAMIN D [Concomitant]
     Active Substance: CHOLECALCIFEROL
     Dosage: UNK
     Route: 048
  8. RESTASIS [Suspect]
     Active Substance: CYCLOSPORINE
     Indication: DRY EYE
     Dosage: UNK UNK, QD
     Route: 047
     Dates: start: 20161027
  9. CLONAZEPAM. [Concomitant]
     Active Substance: CLONAZEPAM
     Dosage: UNK
     Route: 048
  10. ALBUTEROL. [Concomitant]
     Active Substance: ALBUTEROL
     Indication: CHRONIC OBSTRUCTIVE PULMONARY DISEASE
  11. ALBUTEROL. [Concomitant]
     Active Substance: ALBUTEROL
     Indication: EMPHYSEMA
  12. ALBUTEROL. [Concomitant]
     Active Substance: ALBUTEROL
     Indication: EMPHYSEMA
  13. ESTROGENS [Concomitant]
     Active Substance: ESTROGENS
     Dosage: UNK
  14. LIFITEGRAST [Concomitant]
     Active Substance: LIFITEGRAST
     Indication: DRY EYE
     Dosage: UNK
     Route: 047
     Dates: start: 201609, end: 201609
  15. ALBUTEROL. [Concomitant]
     Active Substance: ALBUTEROL
     Indication: ASTHMA
     Dosage: UNK
  16. ALBUTEROL. [Concomitant]
     Active Substance: ALBUTEROL
     Indication: CHRONIC OBSTRUCTIVE PULMONARY DISEASE
  17. GABAPENTIN. [Concomitant]
     Active Substance: GABAPENTIN
     Indication: EMPHYSEMA

REACTIONS (5)
  - Dry eye [Recovering/Resolving]
  - Eye irritation [Recovered/Resolved]
  - Eye pruritus [Recovered/Resolved]
  - Lacrimation increased [Recovered/Resolved]
  - Foreign body sensation in eyes [Recovered/Resolved]
